FAERS Safety Report 6520192-8 (Version None)
Quarter: 2009Q4

REPORT INFORMATION
  Report Type: 
  Country: None (occurrence: None)
  Receive Date: 20091229
  Receipt Date: 20091216
  Transmission Date: 20100525
  Serious: Yes (Other)
  Sender: FDA-Public Use
  Company Number: IT-BAYER-200943333GPV

PATIENT
  Sex: Female
  Weight: 3 kg

DRUGS (4)
  1. GYNO CANESTEN [Suspect]
     Indication: DRUG USE FOR UNKNOWN INDICATION
     Dosage: FROM 14TH WEEK OF PREGNANCY
     Route: 064
  2. FOLIC ACID [Suspect]
     Indication: DRUG USE FOR UNKNOWN INDICATION
     Dosage: FROM 6TH WEEK OF PREGNANCY
     Route: 064
  3. TACHIPIRINA [Suspect]
     Indication: DRUG USE FOR UNKNOWN INDICATION
     Dosage: FROM 15TH WEEK OF PREGNANCY
     Route: 064
  4. CLENIL [Suspect]
     Indication: DRUG USE FOR UNKNOWN INDICATION
     Dosage: FROM 15TH WEEK OF PREGNANCY
     Route: 064

REACTIONS (3)
  - CAESAREAN SECTION [None]
  - MATERNAL DRUGS AFFECTING FOETUS [None]
  - NEUROMYOPATHY [None]
